FAERS Safety Report 4972876-0 (Version None)
Quarter: 2006Q2

REPORT INFORMATION
  Report Type: 
  Country: None (occurrence: None)
  Receive Date: 20060410
  Receipt Date: 20060322
  Transmission Date: 20061013
  Serious: Yes (Other)
  Sender: FDA-Public Use
  Company Number: US200603003524

PATIENT
  Age: 76 Year
  Sex: Male

DRUGS (13)
  1. CIALIS [Suspect]
     Indication: ERECTILE DYSFUNCTION
     Dosage: 20 MG, ORAL
     Route: 048
     Dates: start: 20040308, end: 20050101
  2. METFORMIN HCL [Concomitant]
  3. TIMOLOL MALEATE [Concomitant]
  4. ALTACE (RIMIPRIL) [Concomitant]
  5. NORVASC /DEN/(AMLODIPINE BESIALTE) [Concomitant]
  6. ATENOLOL [Concomitant]
  7. ECOTRIN (ACETYLSALICYLIC ACID) [Concomitant]
  8. ZOCOR [Concomitant]
  9. NIACIN (NIACIN UNKNOWN FORMULATION) [Concomitant]
  10. MULTIVITAMINS (ASCORBIC ACID, ERGOCALCIFEROL, FOLIC ACID, NICTINAMIDE, [Concomitant]
  11. CALCIUM CARBONATE (CALCIUM CARBONATE) TABLET [Concomitant]
  12. PROSCAR           /USA/(FINASTERIDE) [Concomitant]
  13. OMEPRAZEN (OMEPRAZOLE) [Concomitant]

REACTIONS (2)
  - BLINDNESS UNILATERAL [None]
  - RETINAL VEIN OCCLUSION [None]
